FAERS Safety Report 23933788 (Version 1)
Quarter: 2024Q2

REPORT INFORMATION
  Report Type: Spontaneous
  Country: CN (occurrence: CN)
  Receive Date: 20240603
  Receipt Date: 20240603
  Transmission Date: 20240716
  Serious: Yes (Hospitalization, Other)
  Sender: FDA-Public Use
  Company Number: CN-PFIZER INC-PV202400072116

PATIENT
  Age: 63 Year
  Sex: Male
  Weight: 51 kg

DRUGS (4)
  1. CYTARABINE [Suspect]
     Active Substance: CYTARABINE
     Indication: Leukaemia
     Dosage: 0.015 G, 2X/DAY
     Route: 058
     Dates: start: 20240510, end: 20240517
  2. ETOPOSIDE [Suspect]
     Active Substance: ETOPOSIDE
     Indication: Leukaemia
     Dosage: 1 DF, 1X/DAY
     Route: 041
     Dates: start: 20240510, end: 20240515
  3. DECITABINE [Suspect]
     Active Substance: DECITABINE
     Indication: Leukaemia
     Dosage: 25 MG, 1X/DAY
     Route: 041
     Dates: start: 20240509, end: 20240511
  4. MITOXANTRONE HYDROCHLORIDE [Suspect]
     Active Substance: MITOXANTRONE HYDROCHLORIDE
     Indication: Leukaemia
     Dosage: 1 DF, 1X/DAY
     Route: 041
     Dates: start: 20240510, end: 20240513

REACTIONS (3)
  - Myelosuppression [Not Recovered/Not Resolved]
  - White blood cell count increased [Recovered/Resolved]
  - Pyrexia [Unknown]

NARRATIVE: CASE EVENT DATE: 20240501
